FAERS Safety Report 7245398-4 (Version None)
Quarter: 2011Q1

REPORT INFORMATION
  Report Type: 
  Country: None (occurrence: None)
  Receive Date: 20110126
  Receipt Date: 20110114
  Transmission Date: 20110831
  Serious: Yes (Other)
  Sender: FDA-Public Use
  Company Number: CH-PFIZER INC-2011001381

PATIENT
  Age: 89 Year
  Sex: Female

DRUGS (13)
  1. TOREM [Concomitant]
     Dosage: 10 MG, 1X/DAY
     Route: 048
     Dates: start: 20101001
  2. NEURONTIN [Suspect]
     Indication: DEPRESSION
     Dosage: 300 MG, 3X/DAY
     Route: 048
  3. MOVICOL [Concomitant]
     Dosage: 2 DF, 1X/DAY
     Route: 048
  4. TRITTICO [Interacting]
     Indication: DEPRESSION
     Dosage: 50 MG, 1X/DAY
     Route: 048
  5. NEXIUM [Concomitant]
     Dosage: 40 MG, 1X/DAY
     Route: 048
     Dates: start: 20101001
  6. ATARAX [Interacting]
     Dosage: 25 MG, SINGLE
     Route: 048
     Dates: start: 20101221, end: 20101221
  7. APROVEL [Concomitant]
     Dosage: 300 MG, 1X/DAY
     Route: 048
  8. CALCIMAGON-D3 [Concomitant]
     Dosage: 500 MG, 1X/DAY
     Route: 048
  9. PASPERTIN [Concomitant]
     Indication: NAUSEA
     Dosage: 10 MG, 3X/DAY
     Route: 058
     Dates: start: 20101001
  10. DORMICUM FOR INJECTION [Interacting]
     Indication: SEDATION
     Dosage: 3 MG, SINGLE
     Route: 040
     Dates: start: 20101221, end: 20101221
  11. TEMGESIC ^ESSEX PHARMA^ [Interacting]
     Indication: ABDOMINAL PAIN
     Dosage: 0.1 MG, 3X/DAY
     Route: 060
  12. AMLODIPINE [Concomitant]
     Dosage: 5 MG, 1X/DAY
     Route: 048
  13. DAFALGAN [Concomitant]
     Dosage: 1 G, 3X/DAY
     Route: 048

REACTIONS (3)
  - COMA [None]
  - RESPIRATORY DEPRESSION [None]
  - DRUG INTERACTION [None]
